FAERS Safety Report 18227383 (Version 1)
Quarter: 2020Q3

REPORT INFORMATION
  Report Type: Spontaneous
  Country: FR (occurrence: FR)
  Receive Date: 20200903
  Receipt Date: 20200903
  Transmission Date: 20201103
  Serious: Yes (Hospitalization, Other)
  Sender: FDA-Public Use
  Company Number: FR-SA-2020SA232066

PATIENT

DRUGS (3)
  1. ERYTHROMYCINE PANPHARMA [Suspect]
     Active Substance: ERYTHROMYCIN LACTOBIONATE
     Indication: IMPAIRED GASTRIC EMPTYING
     Dosage: 750 MG, QD
     Route: 041
     Dates: start: 20200701, end: 20200712
  2. LOVENOX [Suspect]
     Active Substance: ENOXAPARIN SODIUM
     Indication: THROMBOSIS PROPHYLAXIS
     Dosage: 4000 IU, QD
     Route: 058
     Dates: start: 20200701
  3. PANTOPRAZOLE SODIUM. [Suspect]
     Active Substance: PANTOPRAZOLE SODIUM
     Indication: GASTRITIS
     Dosage: 40 MG, QD
     Route: 041
     Dates: start: 20200629, end: 20200713

REACTIONS (3)
  - Pancreatitis acute [Recovering/Resolving]
  - Blood alkaline phosphatase increased [Recovering/Resolving]
  - Hepatocellular injury [Recovering/Resolving]

NARRATIVE: CASE EVENT DATE: 20200712
